FAERS Safety Report 6696561-2 (Version None)
Quarter: 2010Q2

REPORT INFORMATION
  Report Type: 
  Country: None (occurrence: None)
  Receive Date: 20100426
  Receipt Date: 20100408
  Transmission Date: 20101027
  Serious: No
  Sender: FDA-Public Use
  Company Number: US-JNJFOC-20100402445

PATIENT
  Sex: Female
  Weight: 65.77 kg

DRUGS (1)
  1. INVEGA SUSTENNA [Suspect]
     Indication: DRUG DEPENDENCE
     Route: 030

REACTIONS (1)
  - AMENORRHOEA [None]
